FAERS Safety Report 4457201-6 (Version None)
Quarter: 2004Q3

REPORT INFORMATION
  Report Type: 
  Country: None (occurrence: None)
  Receive Date: 20040922
  Receipt Date: 20040912
  Transmission Date: 20050211
  Serious: Yes (Other)
  Sender: FDA-Public Use
  Company Number: CIP04001974

PATIENT
  Age: 58 Year
  Sex: Male

DRUGS (1)
  1. ACTONEL [Suspect]
     Indication: OSTEOPOROSIS
     Dosage: 35 MG ONCE ONLY, ORAL
     Route: 048
     Dates: start: 20040906, end: 20040906

REACTIONS (9)
  - DYSPEPSIA [None]
  - EAR PAIN [None]
  - FACIAL PALSY [None]
  - HEADACHE [None]
  - KERATOCONJUNCTIVITIS SICCA [None]
  - LYME DISEASE [None]
  - NAUSEA [None]
  - PITUITARY ENLARGEMENT [None]
  - TINNITUS [None]
